FAERS Safety Report 14203133 (Version 1)
Quarter: 2017Q4

REPORT INFORMATION
  Report Type: Spontaneous
  Country: US (occurrence: US)
  Receive Date: 20171120
  Receipt Date: 20171120
  Transmission Date: 20180321
  Serious: No
  Sender: FDA-Public Use
  Company Number: US-AUROBINDO-AUR-APU-2017-00452

PATIENT
  Age: 63 Year
  Sex: Male
  Weight: 99.77 kg

DRUGS (1)
  1. MODAFINIL TABLETS USP 200MG [Suspect]
     Active Substance: MODAFINIL
     Indication: NARCOLEPSY
     Dosage: 200 MG,1 TABLET A DAY
     Route: 065

REACTIONS (1)
  - Urine odour abnormal [Recovered/Resolved]
